FAERS Safety Report 11195619 (Version 2)
Quarter: 2016Q2

REPORT INFORMATION
  Report Type: Spontaneous
  Country: US (occurrence: US)
  Receive Date: 20150617
  Receipt Date: 20160524
  Transmission Date: 20160815
  Serious: Yes (Other)
  Sender: FDA-Public Use
  Company Number: US-PFIZER INC-2015200275

PATIENT
  Age: 28 Year
  Sex: Female
  Weight: 77 kg

DRUGS (4)
  1. HYDROCHLOROTHIAZIDE. [Concomitant]
     Active Substance: HYDROCHLOROTHIAZIDE
     Dosage: UNK
  2. PREMARIN [Suspect]
     Active Substance: ESTROGENS, CONJUGATED
     Indication: HORMONE REPLACEMENT THERAPY
     Dosage: UNK (0.09)
     Dates: start: 1977
  3. LOSARTAN. [Concomitant]
     Active Substance: LOSARTAN
     Indication: BLOOD PRESSURE ABNORMAL
     Dosage: 100 MG, 1X/DAY
  4. GABAPENTIN. [Concomitant]
     Active Substance: GABAPENTIN
     Indication: FIBROMYALGIA
     Dosage: 600 MG, 3X/DAY (1800MG A DAY)

REACTIONS (8)
  - Mental disorder [Unknown]
  - Blindness unilateral [Unknown]
  - Back disorder [Unknown]
  - Cataract [Not Recovered/Not Resolved]
  - Hypoacusis [Unknown]
  - Anxiety [Unknown]
  - Hepatic cancer [Unknown]
  - Mood swings [Not Recovered/Not Resolved]
